FAERS Safety Report 7626487-9 (Version None)
Quarter: 2011Q3

REPORT INFORMATION
  Report Type: 
  Country: None (occurrence: None)
  Receive Date: 20110721
  Receipt Date: 20110719
  Transmission Date: 20111222
  Serious: Yes (Hospitalization)
  Sender: FDA-Public Use
  Company Number: RO-ROCHE-785067

PATIENT
  Sex: Female
  Weight: 74.5 kg

DRUGS (10)
  1. PRESTARIUM [Concomitant]
     Dates: start: 20100920
  2. DOCETAXEL [Suspect]
     Dosage: DOSE LEVEL: 100 MG/M2, FORM: VIALS, LAST DOSE PRIOR TO SAE: 02 NOV 2010
     Route: 042
     Dates: start: 20100921
  3. PHYSIOTENS [Concomitant]
     Dates: start: 20100920
  4. TRASTUZUMAB [Suspect]
     Dosage: RESTARTED
     Route: 042
     Dates: start: 20110517
  5. CYCLOPHOSPHAMIDE [Suspect]
     Dosage: LAST DOSE PRIOR TO SAE: 4 JAN 2011, DOSE LEVEL: 600 MG/M2, FORM: VIALS
     Route: 042
     Dates: start: 20101123
  6. TRASTUZUMAB [Suspect]
     Dosage: MAINTENANCE DOSE, TOTAL DOSE: 450 MG, FORM: VIALS, LAST DOSE PRIOR TO SAE: 19 APR 2011, DRUG HELD.
     Route: 042
     Dates: start: 20101012
  7. EPIRUBICIN [Suspect]
     Dosage: LAST DOSE PRIOR TO SAE: 04 JAN 2011, FORM: VIALS, DOSE LEVEL 90 MG/M2
     Route: 042
     Dates: start: 20101123
  8. AMLOHEXAL [Concomitant]
     Dates: start: 20100920
  9. FLUOROURACIL [Suspect]
     Dosage: LAST DOSE PRIOR TO SAE: 4 JAN 2011, FORM: VIAL, DOSE LEVEL: 600 MG/M2
     Route: 042
     Dates: start: 20101123
  10. TRASTUZUMAB [Suspect]
     Dosage: LOADING DOSE
     Route: 042
     Dates: start: 20100921

REACTIONS (1)
  - ANGINA PECTORIS [None]
